FAERS Safety Report 23206219 (Version 2)
Quarter: 2024Q1

REPORT INFORMATION
  Report Type: Spontaneous
  Country: JP (occurrence: JP)
  Receive Date: 20231120
  Receipt Date: 20240315
  Transmission Date: 20240410
  Serious: Yes (Hospitalization, Other)
  Sender: FDA-Public Use
  Company Number: JP-DSJP-DSJ-2023-147012

PATIENT
  Age: 88 Year
  Sex: Female

DRUGS (3)
  1. EDOXABAN TOSYLATE [Suspect]
     Active Substance: EDOXABAN TOSYLATE
     Indication: Atrial fibrillation
     Dosage: 15MG/DAY
     Route: 048
  2. ANDEXANET ALFA [Concomitant]
     Active Substance: ANDEXANET ALFA
     Indication: Thalamus haemorrhage
     Dosage: 800 MG, SPEED OF  30 MG/MIN
     Route: 042
  3. ANDEXANET ALFA [Concomitant]
     Active Substance: ANDEXANET ALFA
     Dosage: 960 MG, SPEED OF  8 MG/MIN
     Route: 042

REACTIONS (4)
  - Thalamus haemorrhage [Unknown]
  - Back pain [Unknown]
  - Cerebral infarction [Unknown]
  - Cerebral artery occlusion [Unknown]
